FAERS Safety Report 7731962-2 (Version None)
Quarter: 2011Q3

REPORT INFORMATION
  Report Type: 
  Country: None (occurrence: None)
  Receive Date: 20110906
  Receipt Date: 20110719
  Transmission Date: 20111222
  Serious: No
  Sender: FDA-Public Use
  Company Number: US-AMGEN-USASP2011036608

PATIENT
  Age: 80 Year
  Sex: Female

DRUGS (9)
  1. CALCIUM CARBONATE [Concomitant]
  2. PROLIA [Suspect]
     Indication: OSTEOPOROSIS POSTMENOPAUSAL
     Dosage: 60 MG, Q6MO
     Dates: start: 20110201
  3. VITAMIN D [Concomitant]
  4. FISH OIL [Concomitant]
  5. MULTIBIONTA MINERAL [Concomitant]
  6. PAIN RELIEVER [Concomitant]
  7. OXYBUTYNIN [Concomitant]
  8. POTASSIUM [Concomitant]
  9. GENFIBROZILA [Concomitant]

REACTIONS (2)
  - BACK PAIN [None]
  - ARTHRALGIA [None]
